FAERS Safety Report 4559615-2 (Version None)
Quarter: 2005Q1

REPORT INFORMATION
  Report Type: 
  Country: None (occurrence: None)
  Receive Date: 20050124
  Receipt Date: 20050111
  Transmission Date: 20050727
  Serious: Yes (Death)
  Sender: FDA-Public Use
  Company Number: US-ABBOTT-05P-163-0285975-00

PATIENT
  Age: 57 Year
  Sex: Male

DRUGS (5)
  1. RITONAVIR SOFT GELATIN CAPSULES [Suspect]
     Indication: HIV INFECTION
     Route: 048
     Dates: start: 20040405, end: 20040805
  2. TIPRANAVIR [Concomitant]
     Indication: HIV INFECTION
     Route: 048
     Dates: start: 20040405, end: 20040805
  3. FUZEON [Concomitant]
     Indication: DRUG USE FOR UNKNOWN INDICATION
  4. TENOFOVIR [Concomitant]
     Indication: DRUG USE FOR UNKNOWN INDICATION
  5. ABACAVIR [Concomitant]
     Indication: DRUG USE FOR UNKNOWN INDICATION

REACTIONS (1)
  - DEATH [None]
